FAERS Safety Report 18048560 (Version 1)
Quarter: 2020Q3

REPORT INFORMATION
  Report Type: Spontaneous
  Country: CN (occurrence: CN)
  Receive Date: 20200721
  Receipt Date: 20200721
  Transmission Date: 20201103
  Serious: Yes (Hospitalization, Other)
  Sender: FDA-Public Use
  Company Number: NVSC2020CN202855

PATIENT
  Age: 33 Year
  Sex: Male

DRUGS (7)
  1. TACROLIMUS. [Suspect]
     Active Substance: TACROLIMUS
     Indication: IMMUNOSUPPRESSANT DRUG THERAPY
     Dosage: 0.05 MG/KG (ON POSTOPERATIVE DAY 4)
     Route: 048
  2. TACROLIMUS. [Suspect]
     Active Substance: TACROLIMUS
     Dosage: UNK (THEN 7 TO 10 NG/ML FOR THE NEXT 2 MONTHS)
     Route: 048
  3. TACROLIMUS. [Suspect]
     Active Substance: TACROLIMUS
     Indication: LIVER TRANSPLANT
     Dosage: UNK (MAINTAIN 12?HOUR WHOLE BLOOD TROUGH LEVELS BETWEEN 8 AND 12 NG/ML
     Route: 048
  4. TACROLIMUS. [Suspect]
     Active Substance: TACROLIMUS
     Dosage: UNK (5 TO 8 NG/ML UP TO THE 1ST YEAR)
     Route: 048
  5. MYCOPHENOLATE MOFETIL. [Suspect]
     Active Substance: MYCOPHENOLATE MOFETIL
     Indication: LIVER TRANSPLANT
  6. MYCOPHENOLATE MOFETIL. [Suspect]
     Active Substance: MYCOPHENOLATE MOFETIL
     Indication: IMMUNOSUPPRESSANT DRUG THERAPY
     Dosage: 0.75 G, BID (ON POSTOPERATIVE DAY 4)
     Route: 065
  7. TACROLIMUS. [Suspect]
     Active Substance: TACROLIMUS
     Dosage: UNK (MAINTAINED AT 4 TO 6 NG/ML)
     Route: 048

REACTIONS (3)
  - Leiomyosarcoma [Unknown]
  - Intestinal obstruction [Recovering/Resolving]
  - Disease progression [Unknown]
